FAERS Safety Report 15250312 (Version 1)
Quarter: 2018Q3

REPORT INFORMATION
  Report Type: Spontaneous
  Country: DE (occurrence: DE)
  Receive Date: 20180807
  Receipt Date: 20180807
  Transmission Date: 20181010
  Serious: Yes (Death, Life-Threatening, Hospitalization, Other)
  Sender: FDA-Public Use
  Company Number: DE-MYLANLABS-2018M1059146

PATIENT
  Sex: Female

DRUGS (6)
  1. MIRTAZAPINE. [Suspect]
     Active Substance: MIRTAZAPINE
     Indication: PRODUCT USED FOR UNKNOWN INDICATION
     Dosage: ADMINISTERED 23.5 DOSAGE FORMS
     Route: 048
  2. IBUPROFEN. [Suspect]
     Active Substance: IBUPROFEN
     Dosage: ADMINISTERED 5 DOSAGE FORMS
     Route: 048
  3. SINUPRET FORTE [Interacting]
     Active Substance: HERBALS
     Indication: PRODUCT USED FOR UNKNOWN INDICATION
     Dosage: ADMINISTERED 5 DOSAGE FORMS
     Route: 048
  4. QUETIAPINE. [Interacting]
     Active Substance: QUETIAPINE
     Dosage: ADMINISTERED 29 DOSAGE FORMS
     Route: 048
  5. IBUPROFEN. [Suspect]
     Active Substance: IBUPROFEN
     Indication: PRODUCT USED FOR UNKNOWN INDICATION
     Dosage: ADMINISTERED 5 DOSAGE FORMS
     Route: 048
  6. QUETIAPINE. [Interacting]
     Active Substance: QUETIAPINE
     Indication: PRODUCT USED FOR UNKNOWN INDICATION
     Dosage: ADMINISTERED 29 DOSAGE FORMS
     Route: 048

REACTIONS (11)
  - Seizure [Unknown]
  - Loss of consciousness [Unknown]
  - Hypotension [Unknown]
  - Drug interaction [Unknown]
  - Intentional overdose [Fatal]
  - Acute respiratory distress syndrome [Unknown]
  - Completed suicide [Fatal]
  - Off label use [Unknown]
  - Lung disorder [Unknown]
  - Hypoxia [Unknown]
  - Respiratory failure [Fatal]
